FAERS Safety Report 8887344 (Version 1)
Quarter: 2012Q4

REPORT INFORMATION
  Report Type: 
  Country: JP (occurrence: JP)
  Receive Date: 20121101
  Receipt Date: 20121101
  Transmission Date: 20130627
  Serious: Yes (Other)
  Sender: FDA-Public Use
  Company Number: JP-PFIZER INC-2012271337

PATIENT
  Age: 8 None
  Sex: Female

DRUGS (2)
  1. NORVASC [Suspect]
     Route: 048
  2. RHEUMATREX [Concomitant]
     Route: 048

REACTIONS (1)
  - Rheumatoid arthritis [Unknown]
